FAERS Safety Report 9869178 (Version 23)
Quarter: 2019Q1

REPORT INFORMATION
  Report Type: Report from Study
  Country: CA (occurrence: CA)
  Receive Date: 20140205
  Receipt Date: 20190121
  Transmission Date: 20190418
  Serious: Yes (Hospitalization, Other)
  Sender: FDA-Public Use
  Company Number: CA-ROCHE-1167570

PATIENT
  Age: 63 Year
  Sex: Male
  Weight: 99.3 kg

DRUGS (19)
  1. RITUXAN [Suspect]
     Active Substance: RITUXIMAB
     Dosage: FREQUENCY : DAY 1, DAY 15.
     Route: 042
     Dates: start: 20121203
  2. ESBRIET [Concomitant]
     Active Substance: PIRFENIDONE
     Indication: PRODUCT USED FOR UNKNOWN INDICATION
     Dosage: 801 MG/DAY (WEEK 1), 1602 MG/DAY (WEEK2), 2403 MG/DAY (WEEK 3) AND CURRENTLY AT 1602MG/DAY (AS OF AP
     Route: 065
     Dates: start: 201405
  3. ADVAIR HFA [Concomitant]
     Active Substance: FLUTICASONE PROPIONATE\SALMETEROL XINAFOATE
  4. DIPHENHYDRAMINE HCL [Concomitant]
     Active Substance: DIPHENHYDRAMINE HYDROCHLORIDE
     Indication: PREMEDICATION
     Route: 048
     Dates: start: 20110516
  5. RITUXAN [Suspect]
     Active Substance: RITUXIMAB
     Dosage: FREQUENCY : DAY 1, DAY 15.
     Route: 042
     Dates: start: 20130605
  6. PREDNISONE. [Concomitant]
     Active Substance: PREDNISONE
     Dosage: INCREASED DOSE
     Route: 065
     Dates: start: 201312
  7. NOVORAPID [Concomitant]
     Active Substance: INSULIN ASPART
  8. NADOLOL. [Concomitant]
     Active Substance: NADOLOL
  9. ACETYLCYSTEINE. [Concomitant]
     Active Substance: ACETYLCYSTEINE
     Indication: PRODUCTIVE COUGH
  10. RITUXAN [Suspect]
     Active Substance: RITUXIMAB
     Route: 042
     Dates: start: 20150312
  11. ALENDRONATE [Concomitant]
     Active Substance: ALENDRONATE SODIUM
  12. ACETAMINOPHEN. [Concomitant]
     Active Substance: ACETAMINOPHEN
     Indication: PREMEDICATION
     Route: 048
     Dates: start: 20110516
  13. TYLENOL [Concomitant]
     Active Substance: ACETAMINOPHEN
     Indication: PREMEDICATION
     Route: 042
     Dates: start: 20110516
  14. METFORMIN [Concomitant]
     Active Substance: METFORMIN HYDROCHLORIDE
  15. GLICLAZIDE [Concomitant]
     Active Substance: GLICLAZIDE
  16. RITUXAN [Suspect]
     Active Substance: RITUXIMAB
     Indication: RHEUMATOID ARTHRITIS
     Dosage: LAST DOSE PRIOR TO SAE: 22/APR/2016.
     Route: 042
     Dates: start: 20110516
  17. TECTA [Concomitant]
     Active Substance: PANTOPRAZOLE MAGNESIUM
  18. METHYLPREDNISOLONE. [Concomitant]
     Active Substance: METHYLPREDNISOLONE
     Indication: PREMEDICATION
     Route: 042
     Dates: start: 20110516
  19. SERTRALINE HCL [Concomitant]
     Active Substance: SERTRALINE HYDROCHLORIDE

REACTIONS (18)
  - Melanocytic naevus [Unknown]
  - Oxygen saturation decreased [Unknown]
  - Gastric haemorrhage [Unknown]
  - Varicose vein [Unknown]
  - Gastric haemorrhage [Recovered/Resolved]
  - Oxygen saturation decreased [Unknown]
  - Pulmonary pain [Unknown]
  - Lung infection [Not Recovered/Not Resolved]
  - Heart rate irregular [Unknown]
  - Heart rate decreased [Unknown]
  - Blood pressure diastolic decreased [Unknown]
  - Lower respiratory tract infection [Unknown]
  - Pulmonary fibrosis [Not Recovered/Not Resolved]
  - Cough [Unknown]
  - Nasopharyngitis [Not Recovered/Not Resolved]
  - Dyspnoea [Unknown]
  - Splenomegaly [Unknown]
  - Infusion related reaction [Unknown]

NARRATIVE: CASE EVENT DATE: 201212
